FAERS Safety Report 16940178 (Version 1)
Quarter: 2019Q4

REPORT INFORMATION
  Report Type: Spontaneous
  Country: AR (occurrence: AR)
  Receive Date: 20191021
  Receipt Date: 20191021
  Transmission Date: 20200122
  Serious: Yes (Hospitalization, Other)
  Sender: FDA-Public Use
  Company Number: AR-DENTSPLY-2019SCDP000569

PATIENT
  Age: 85 Year
  Sex: Female

DRUGS (2)
  1. ROPIVACAINE. [Suspect]
     Active Substance: ROPIVACAINE HYDROCHLORIDE
     Indication: LOCAL ANAESTHESIA
     Dosage: 3 TO 5 ML, EVERY 15 SECONDS
  2. LIDOCAINE HCL [Suspect]
     Active Substance: LIDOCAINE HYDROCHLORIDE
     Indication: LOCAL ANAESTHESIA
     Dosage: 3 TO 5 ML, EVERY 15 SECONDS

REACTIONS (6)
  - Hypoxia [Unknown]
  - Bradycardia [Unknown]
  - Respiratory disorder [Unknown]
  - Disorientation [Recovered/Resolved]
  - Local anaesthetic systemic toxicity [Unknown]
  - Neurotoxicity [Unknown]
